FAERS Safety Report 16462277 (Version 1)
Quarter: 2019Q2

REPORT INFORMATION
  Report Type: Report from Study
  Country: US (occurrence: US)
  Receive Date: 20190621
  Receipt Date: 20190621
  Transmission Date: 20190711
  Serious: Yes (Hospitalization)
  Sender: FDA-Public Use
  Company Number: US-BIOGEN-2019BI00749763

PATIENT
  Sex: Male

DRUGS (1)
  1. SPINRAZA [Suspect]
     Active Substance: NUSINERSEN
     Indication: SPINAL MUSCULAR ATROPHY
     Dosage: PHYSICIAN TO ADMINISTER 12MG/5ML INTRATHECALLY ONCE EVERY 4 MONTHS.
     Route: 037

REACTIONS (1)
  - Infection [Unknown]
